FAERS Safety Report 20481341 (Version 12)
Quarter: 2024Q4

REPORT INFORMATION
  Report Type: Report from Study
  Country: MX (occurrence: MX)
  Receive Date: 20220216
  Receipt Date: 20241223
  Transmission Date: 20250115
  Serious: Yes (Hospitalization)
  Sender: TAKEDA
  Company Number: MX-TAKEDA-MX202011550

PATIENT
  Age: 9 Year
  Sex: Male
  Weight: 26 kg

DRUGS (10)
  1. IDURSULFASE [Suspect]
     Active Substance: IDURSULFASE
     Indication: Mucopolysaccharidosis II
     Dosage: UNK
  2. IDURSULFASE [Suspect]
     Active Substance: IDURSULFASE
     Dosage: 3 DOSAGE FORM
  3. IDURSULFASE [Suspect]
     Active Substance: IDURSULFASE
     Dosage: 2 DOSAGE FORM
  4. IDURSULFASE [Suspect]
     Active Substance: IDURSULFASE
     Dosage: 18 MILLIGRAM, 1/WEEK
  5. IDURSULFASE [Suspect]
     Active Substance: IDURSULFASE
     Dosage: UNK
  6. IDURSULFASE [Suspect]
     Active Substance: IDURSULFASE
     Dosage: 4 DOSAGE FORM
  7. IDURSULFASE [Suspect]
     Active Substance: IDURSULFASE
     Dosage: UNK UNK, 1/WEEK
  8. ENALAPRIL [Concomitant]
     Active Substance: ENALAPRIL
     Indication: Mucopolysaccharidosis II
     Dosage: 20 MILLIGRAM, QD
     Dates: start: 201710
  9. FUROSEMIDE [Concomitant]
     Active Substance: FUROSEMIDE
     Indication: Mucopolysaccharidosis II
     Dosage: 40 MILLIGRAM, QD
     Dates: start: 201710
  10. SPIRONOLACTONE [Concomitant]
     Active Substance: SPIRONOLACTONE
     Indication: Mucopolysaccharidosis II
     Dosage: 1 DOSAGE FORM, QD
     Dates: start: 201710

REACTIONS (12)
  - Animal bite [Recovered/Resolved]
  - Pain in extremity [Recovered/Resolved]
  - Nasopharyngitis [Recovering/Resolving]
  - Arthralgia [Recovering/Resolving]
  - Circumstance or information capable of leading to medication error [Unknown]
  - Product availability issue [Recovering/Resolving]
  - Burning sensation [Not Recovered/Not Resolved]
  - Inappropriate schedule of product administration [Recovered/Resolved]
  - Product dose omission issue [Not Recovered/Not Resolved]
  - Cough [Recovering/Resolving]
  - Dyspepsia [Not Recovered/Not Resolved]
  - Pyrexia [Recovering/Resolving]

NARRATIVE: CASE EVENT DATE: 20200323
